FAERS Safety Report 8054347-0 (Version None)
Quarter: 2012Q1

REPORT INFORMATION
  Report Type: 
  Country: None (occurrence: None)
  Receive Date: 20120118
  Receipt Date: 20120113
  Transmission Date: 20120608
  Serious: Yes (Disabling)
  Sender: FDA-Public Use
  Company Number: PHHY2011CA93336

PATIENT
  Sex: Female

DRUGS (4)
  1. CALCIUM W/VITAMIN D NOS [Concomitant]
  2. PANTOPRAZOLE SODIUM [Concomitant]
     Dosage: 40 MG, UNK
  3. ZOLEDRONOC ACID [Suspect]
     Indication: OSTEOPOROSIS
     Dosage: UNK UKN, UNK
     Route: 042
     Dates: start: 20110210
  4. CELEBREX [Concomitant]
     Dosage: 200 MG, PRN

REACTIONS (3)
  - SKIN EXFOLIATION [None]
  - GAIT DISTURBANCE [None]
  - ARTHRALGIA [None]
